FAERS Safety Report 18956174 (Version 1)
Quarter: 2021Q1

REPORT INFORMATION
  Report Type: Spontaneous
  Country: GB (occurrence: GB)
  Receive Date: 20210301
  Receipt Date: 20210301
  Transmission Date: 20210420
  Serious: Yes (Other)
  Sender: FDA-Public Use
  Company Number: GB-TEVA-2021-GB-1882143

PATIENT
  Age: 19 Year
  Sex: Female
  Weight: 61.68 kg

DRUGS (2)
  1. TRIMETHOPRIM. [Suspect]
     Active Substance: TRIMETHOPRIM
     Indication: URINARY TRACT INFECTION
     Dosage: 400 MILLIGRAM DAILY;
     Route: 048
     Dates: start: 20210210, end: 20210212
  2. CABERGOLINE. [Concomitant]
     Active Substance: CABERGOLINE
     Indication: ILL-DEFINED DISORDER

REACTIONS (4)
  - Nausea [Recovered/Resolved]
  - Migraine [Recovered/Resolved]
  - Abdominal pain [Recovering/Resolving]
  - Vomiting [Recovered/Resolved]

NARRATIVE: CASE EVENT DATE: 20210210
